FAERS Safety Report 5108646-2 (Version None)
Quarter: 2006Q3

REPORT INFORMATION
  Report Type: 
  Country: None (occurrence: None)
  Receive Date: 20060915
  Receipt Date: 20060905
  Transmission Date: 20061208
  Serious: Yes (Hospitalization)
  Sender: FDA-Public Use
  Company Number: E2020-00203-SPO-JP

PATIENT
  Age: 83 Year
  Sex: Female
  Weight: 48 kg

DRUGS (14)
  1. ARICEPT [Suspect]
     Indication: DEMENTIA ALZHEIMER'S TYPE
     Dosage: SEE IMAGE
     Route: 048
     Dates: start: 20060223, end: 20060309
  2. ARICEPT [Suspect]
     Indication: DEMENTIA ALZHEIMER'S TYPE
     Dosage: SEE IMAGE
     Route: 048
     Dates: start: 20060310, end: 20060626
  3. MIKELAN (CARTEOLOL HYDROCHLORIDE) [Concomitant]
  4. PERDIPINE LA (NICARDIPINE HYDROCHLORIDE) (NICARDIPINE HYDROCHLORIDE) [Concomitant]
  5. TOUGHMAC E (DIASTASE (COMBINATION DRUG) (TOUGHMAC E) [Concomitant]
  6. MARZULENE S (SODIUM AZULENE SULFONATE L-GLUTAMINE) (MARZULENE S) [Concomitant]
  7. MYONAL (EPERISONE HYDROCHLORIDE) [Concomitant]
  8. JUVELA N (TOCOPHEROL NICOTINATE) (TOCOPHERYL NICOTINATE) [Concomitant]
  9. MIYA BM (CLOSTRIDIUM BUTYRICUM) [Concomitant]
  10. NIZATIDINE [Concomitant]
  11. GASMOTIN (MOSAPRIDE CITRATE) [Concomitant]
  12. MUCOSTA (REBAMIPIDE) [Concomitant]
  13. NORVASC [Concomitant]
  14. BLOPRESS (CANDESARTAN CILEXETIL) [Concomitant]

REACTIONS (5)
  - CYANOSIS [None]
  - DYSPNOEA [None]
  - LARYNGEAL OEDEMA [None]
  - PHARYNGITIS [None]
  - STRIDOR [None]
